FAERS Safety Report 16203710 (Version 1)
Quarter: 2019Q2

REPORT INFORMATION
  Report Type: Spontaneous
  Country: GB (occurrence: GB)
  Receive Date: 20190416
  Receipt Date: 20190416
  Transmission Date: 20190711
  Serious: Yes (Other)
  Sender: FDA-Public Use
  Company Number: PHHY2019GB082171

PATIENT
  Age: 67 Year
  Sex: Female

DRUGS (7)
  1. MEXILETINE [Interacting]
     Active Substance: MEXILETINE
     Indication: CARDIAC FAILURE CHRONIC
     Dosage: 600 MG, QID
     Route: 065
  2. SPIRONOLACTONE. [Concomitant]
     Active Substance: SPIRONOLACTONE
     Indication: CARDIAC FAILURE
     Dosage: 25 MG, QID
     Route: 065
  3. CARVEDILOL. [Concomitant]
     Active Substance: CARVEDILOL
     Indication: CARDIAC FAILURE CHRONIC
     Dosage: 50 MG, QID
     Route: 065
  4. MEXILETINE [Interacting]
     Active Substance: MEXILETINE
     Dosage: 900 MG, QID
     Route: 065
  5. LCZ696 [Suspect]
     Active Substance: SACUBITRIL\VALSARTAN
     Indication: CARDIAC FAILURE CHRONIC
     Dosage: 1 DF (49/51 MG), BID
     Route: 065
  6. CANDESARTAN. [Concomitant]
     Active Substance: CANDESARTAN
     Indication: CARDIAC FAILURE
     Dosage: 24 MG, QID
     Route: 065
  7. CANDESARTAN. [Concomitant]
     Active Substance: CANDESARTAN
     Dosage: 32 MG, QID
     Route: 065

REACTIONS (2)
  - Drug interaction [Unknown]
  - Ventricular tachycardia [Recovered/Resolved]
